FAERS Safety Report 14652553 (Version 2)
Quarter: 2018Q1

REPORT INFORMATION
  Report Type: Report from Study
  Country: None (occurrence: US)
  Receive Date: 20180319
  Receipt Date: 20180329
  Transmission Date: 20180509
  Serious: Yes (Other)
  Sender: FDA-Public Use
  Company Number: US-ABBVIE-17K-163-2131845-00

PATIENT
  Sex: Female

DRUGS (2)
  1. HUMIRA [Suspect]
     Active Substance: ADALIMUMAB
     Route: 058
  2. HUMIRA [Suspect]
     Active Substance: ADALIMUMAB
     Indication: CROHN^S DISEASE
     Route: 058

REACTIONS (9)
  - Crohn^s disease [Recovered/Resolved]
  - Therapeutic response shortened [Recovered/Resolved]
  - Frequent bowel movements [Recovering/Resolving]
  - Wrong technique in product usage process [Unknown]
  - Injection site haemorrhage [Unknown]
  - Cyst [Recovering/Resolving]
  - Frequent bowel movements [Unknown]
  - Drug dispensing error [Unknown]
  - Abdominal pain upper [Recovered/Resolved]
